FAERS Safety Report 23149332 (Version 1)
Quarter: 2023Q4

REPORT INFORMATION
  Report Type: Report from Study
  Country: US (occurrence: US)
  Receive Date: 20231106
  Receipt Date: 20231106
  Transmission Date: 20240110
  Serious: Yes (Other)
  Sender: FDA-Public Use
  Company Number: US-BAYER-2023A129594

PATIENT
  Age: 66 Year
  Sex: Female

DRUGS (3)
  1. VITRAKVI [Suspect]
     Active Substance: LAROTRECTINIB
     Indication: Neoplasm
     Dosage: 100 MG, BID
     Route: 048
     Dates: start: 20230901
  2. VITRAKVI [Suspect]
     Active Substance: LAROTRECTINIB
     Indication: Neoplasm
     Dosage: 100 MG, BID
  3. GABAPENTIN [Concomitant]
     Active Substance: GABAPENTIN
     Dosage: UNK

REACTIONS (2)
  - Gait deviation [Unknown]
  - Dizziness [Not Recovered/Not Resolved]

NARRATIVE: CASE EVENT DATE: 20230901
